FAERS Safety Report 7752741-6 (Version None)
Quarter: 2011Q3

REPORT INFORMATION
  Report Type: 
  Country: None (occurrence: None)
  Receive Date: 20110915
  Receipt Date: 20110908
  Transmission Date: 20111222
  Serious: Yes (Hospitalization)
  Sender: FDA-Public Use
  Company Number: GB-AMGEN-GBRCT2011038979

PATIENT
  Age: 67 Year
  Sex: Female

DRUGS (3)
  1. BLINDED DENOSUMAB [Suspect]
     Indication: BREAST CANCER
     Dosage: UNK UNK, Q3WK
     Route: 058
     Dates: start: 20110513
  2. BLINDED PLACEBO [Suspect]
     Indication: BREAST CANCER
     Dosage: UNK UNK, Q3WK
     Route: 058
     Dates: start: 20110513
  3. DOCETAXEL [Concomitant]
     Dosage: 160 MG, Q3WK
     Route: 042
     Dates: start: 20110727

REACTIONS (2)
  - ABDOMINAL PAIN [None]
  - DIARRHOEA [None]
